FAERS Safety Report 26132295 (Version 1)
Quarter: 2025Q4

REPORT INFORMATION
  Report Type: Spontaneous
  Country: US (occurrence: US)
  Receive Date: 20251208
  Receipt Date: 20251208
  Transmission Date: 20260118
  Serious: No
  Sender: NEUROCRINE BIOSCIENCES
  Company Number: US-NEUROCRINE BIOSCIENCES INC.-2025NBI16009

PATIENT
  Age: 8 Year
  Sex: Male

DRUGS (4)
  1. CRENESSITY [Suspect]
     Active Substance: CRINECERFONT
     Indication: Adrenogenital syndrome
     Dosage: 50 MILLIGRAM, BID
     Route: 065
  2. CORTEF [Concomitant]
     Active Substance: HYDROCORTISONE
     Dosage: 10.2 MILLIGRAM/SQ. METER
  3. CORTEF [Concomitant]
     Active Substance: HYDROCORTISONE
     Dosage: 8.2 MILLIGRAM/SQ. METER
  4. CORTEF [Concomitant]
     Active Substance: HYDROCORTISONE
     Dosage: 10.2 MILLIGRAM/SQ. METER

REACTIONS (2)
  - 11-deoxycorticosterone increased [Recovered/Resolved]
  - Fatigue [Unknown]
